FAERS Safety Report 11024595 (Version 1)
Quarter: 2015Q2

REPORT INFORMATION
  Report Type: Spontaneous
  Country: US (occurrence: None)
  Receive Date: 20150413
  Receipt Date: 20150413
  Transmission Date: 20150821
  Serious: Yes (Death, Hospitalization)
  Sender: FDA-Public Use
  Company Number: None

PATIENT
  Age: 95 Year
  Sex: Female
  Weight: 68 kg

DRUGS (10)
  1. DONEPEZIL (ARICEPT) [Concomitant]
  2. HYDROCHLOROTHIAZIDE (HYDRODIURIL) [Concomitant]
  3. METOPROLOL (TOPROL-XL) [Concomitant]
  4. WARFARIN 5 MG [Suspect]
     Active Substance: WARFARIN
     Indication: ATRIAL FIBRILLATION
     Route: 048
  5. TYLENOL [Concomitant]
     Active Substance: ACETAMINOPHEN
  6. ASPIRIN 325 MG [Concomitant]
     Active Substance: ASPIRIN
     Indication: ATRIAL FIBRILLATION
     Route: 048
  7. HYDROCODONE-ACETAMINOPHEN) (NORCO) [Concomitant]
  8. SENNOSIDES (EX-LAX) [Concomitant]
  9. CALCIUM CARBONATE-VITAMIN D (CALCIUM + D( [Concomitant]
  10. LORARTAN (COZAAR) [Concomitant]

REACTIONS (4)
  - Laceration [None]
  - Subdural haematoma [None]
  - Fall [None]
  - Cervical vertebral fracture [None]

NARRATIVE: CASE EVENT DATE: 20150211
